FAERS Safety Report 6808840-6 (Version None)
Quarter: 2010Q2

REPORT INFORMATION
  Report Type: 
  Country: None (occurrence: None)
  Receive Date: 20100630
  Receipt Date: 20091001
  Transmission Date: 20101027
  Serious: No
  Sender: FDA-Public Use
  Company Number: US-PFIZER INC-2009255548

PATIENT
  Sex: Female
  Weight: 83.5 kg

DRUGS (17)
  1. TIKOSYN [Suspect]
     Indication: ATRIAL FIBRILLATION
     Dosage: FREQUENCY: 2X/DAY, EVERY DAY;
     Dates: start: 20090701
  2. SPIRIVA [Concomitant]
  3. ADVAIR DISKUS 100/50 [Concomitant]
  4. SITAGLIPTIN [Concomitant]
  5. METFORMIN [Concomitant]
  6. FOLIC ACID [Concomitant]
  7. ZANTAC [Concomitant]
  8. LOVASTATIN [Concomitant]
  9. BENICAR [Concomitant]
  10. ALLOPURINOL [Concomitant]
  11. XALATAN [Concomitant]
  12. FOSAMAX [Concomitant]
  13. WARFARIN [Concomitant]
  14. NORVASC [Concomitant]
  15. VICODIN [Concomitant]
  16. ETANERCEPT [Concomitant]
  17. METHOTREXATE [Concomitant]

REACTIONS (1)
  - RHEUMATOID ARTHRITIS [None]
